FAERS Safety Report 20498810 (Version 2)
Quarter: 2022Q1

REPORT INFORMATION
  Report Type: Spontaneous
  Country: US (occurrence: US)
  Receive Date: 20220222
  Receipt Date: 20220307
  Transmission Date: 20220423
  Serious: No
  Sender: FDA-Public Use
  Company Number: US-AMGEN-USASP2022026402

PATIENT
  Age: 76 Year
  Sex: Male

DRUGS (1)
  1. MVASI [Suspect]
     Active Substance: BEVACIZUMAB-AWWB
     Indication: Lung neoplasm malignant
     Dosage: 450 MILLIGRAM
     Route: 065

REACTIONS (1)
  - Laboratory test [Unknown]

NARRATIVE: CASE EVENT DATE: 20220208
